FAERS Safety Report 24910598 (Version 3)
Quarter: 2025Q1

REPORT INFORMATION
  Report Type: Spontaneous
  Country: CA (occurrence: CA)
  Receive Date: 20250131
  Receipt Date: 20250324
  Transmission Date: 20250409
  Serious: Yes (Other)
  Sender: PFIZER
  Company Number: CA-PFIZER INC-202400269290

PATIENT
  Age: 48 Year
  Sex: Female

DRUGS (19)
  1. RUXIENCE [Suspect]
     Active Substance: RITUXIMAB-PVVR
     Indication: Granulomatosis with polyangiitis
     Route: 042
     Dates: start: 20230814, end: 20230828
  2. RUXIENCE [Suspect]
     Active Substance: RITUXIMAB-PVVR
     Indication: Congenital syphilitic osteochondritis
     Route: 042
     Dates: start: 20240226, end: 20240311
  3. RUXIENCE [Suspect]
     Active Substance: RITUXIMAB-PVVR
     Route: 042
     Dates: start: 20240909
  4. RUXIENCE [Suspect]
     Active Substance: RITUXIMAB-PVVR
     Route: 042
     Dates: start: 20240923
  5. ATASOL [Concomitant]
  6. CALCIUM [Concomitant]
     Active Substance: CALCIUM
  7. CHOLESTYRAMINE [Concomitant]
     Active Substance: CHOLESTYRAMINE
  8. FERAMAX [Concomitant]
     Active Substance: IRON\POLYSACCHARIDES
  9. IRBESARTAN [Concomitant]
     Active Substance: IRBESARTAN
  10. OXYBUTYNIN [Concomitant]
     Active Substance: OXYBUTYNIN
  11. PINAVERIUM BROMIDE [Concomitant]
     Active Substance: PINAVERIUM BROMIDE
  12. PREDNISONE [Concomitant]
     Active Substance: PREDNISONE
  13. RABEPRAZOLE [Concomitant]
     Active Substance: RABEPRAZOLE
  14. ALBUTEROL [Concomitant]
     Active Substance: ALBUTEROL
  15. SYMBICORT [Concomitant]
     Active Substance: BUDESONIDE\FORMOTEROL FUMARATE DIHYDRATE
  16. SERC [Concomitant]
  17. TORADOL [Concomitant]
     Active Substance: KETOROLAC TROMETHAMINE
  18. TRINTELLIX [Concomitant]
     Active Substance: VORTIOXETINE HYDROBROMIDE
  19. VITAMIN D [Concomitant]
     Active Substance: VITAMIN D NOS

REACTIONS (4)
  - Blood iron decreased [Recovering/Resolving]
  - COVID-19 [Not Recovered/Not Resolved]
  - Fatigue [Recovering/Resolving]
  - Malaise [Recovering/Resolving]
